FAERS Safety Report 7669877-0 (Version None)
Quarter: 2011Q3

REPORT INFORMATION
  Report Type: 
  Country: None (occurrence: None)
  Receive Date: 20110808
  Receipt Date: 20110804
  Transmission Date: 20111222
  Serious: Yes (Hospitalization)
  Sender: FDA-Public Use
  Company Number: FR-BRISTOL-MYERS SQUIBB COMPANY-15949704

PATIENT
  Age: 94 Year
  Sex: Male

DRUGS (6)
  1. GAVISCON [Concomitant]
     Route: 048
  2. LANTUS [Concomitant]
     Indication: DIABETES MELLITUS
     Route: 058
  3. PLAVIX [Concomitant]
     Dosage: 1 TABS
     Route: 048
  4. RABEPRAZOLE SODIUM [Concomitant]
     Dosage: 1 TABS
     Route: 048
  5. FUROSEMIDE [Concomitant]
     Route: 048
  6. IRBESARTAN [Suspect]
     Indication: HYPERTENSION
     Dosage: 1 DF = 1 TAB OF APROVEL 75 MG
     Route: 048
     Dates: start: 20110401, end: 20110604

REACTIONS (3)
  - ABDOMINAL PAIN UPPER [None]
  - HYPOGLYCAEMIA [None]
  - COUGH [None]
